FAERS Safety Report 17813896 (Version 1)
Quarter: 2020Q2

REPORT INFORMATION
  Report Type: Spontaneous
  Country: JP (occurrence: JP)
  Receive Date: 20200521
  Receipt Date: 20200521
  Transmission Date: 20200714
  Serious: Yes (Other)
  Sender: FDA-Public Use
  Company Number: JP-TEVA-2020-JP-1239438

PATIENT
  Age: 71 Year
  Sex: Male

DRUGS (1)
  1. DOCETAXEL. [Suspect]
     Active Substance: DOCETAXEL
     Indication: HORMONE-REFRACTORY PROSTATE CANCER
     Dosage: TOTAL OF SIX CYCLES
     Route: 065
     Dates: start: 201606, end: 2017

REACTIONS (3)
  - Alopecia [Unknown]
  - Hypoaesthesia [Unknown]
  - Job dissatisfaction [Unknown]
